FAERS Safety Report 25016698 (Version 1)
Quarter: 2025Q1

REPORT INFORMATION
  Report Type: Other
  Country: US (occurrence: US)
  Receive Date: 20250227
  Receipt Date: 20250227
  Transmission Date: 20250409
  Serious: Yes (Death, Other)
  Sender: ALVOGEN
  Company Number: US-ALVOGEN-2025096332

PATIENT
  Age: 40 Year
  Sex: Male

DRUGS (3)
  1. OXYCODONE [Suspect]
     Active Substance: OXYCODONE
     Indication: Product used for unknown indication
  2. FENTANYL [Suspect]
     Active Substance: FENTANYL
     Indication: Product used for unknown indication
  3. METHAMPHETAMINE [Suspect]
     Active Substance: METHAMPHETAMINE
     Indication: Product used for unknown indication

REACTIONS (6)
  - Brain oedema [Fatal]
  - Brain hypoxia [Fatal]
  - Cerebral ischaemia [Fatal]
  - Cerebral venous sinus thrombosis [Fatal]
  - Toxicity to various agents [Fatal]
  - Symptom masked [Fatal]
